FAERS Safety Report 9513430 (Version 1)
Quarter: 2013Q3

REPORT INFORMATION
  Report Type: Spontaneous
  Country: US (occurrence: US)
  Receive Date: 20130910
  Receipt Date: 20130910
  Transmission Date: 20140515
  Serious: No
  Sender: FDA-Public Use
  Company Number: US-TARO-2012P1060913

PATIENT
  Age: 68 Year
  Sex: Male
  Weight: 81.65 kg

DRUGS (10)
  1. WARFARIN SODIUM TABLETS USP 5MG [Suspect]
     Route: 048
     Dates: start: 20120601
  2. SIMVASTATIN [Concomitant]
  3. DIGOXIN [Concomitant]
  4. METFORMIN [Concomitant]
  5. GLIMEPIRIDE [Concomitant]
  6. ASPIRIN [Concomitant]
  7. PEPCID [Concomitant]
  8. LEVOTHYROXINE [Concomitant]
  9. METOPROLOL [Concomitant]
  10. CENTRUM SILVER [Concomitant]

REACTIONS (1)
  - Alopecia [Not Recovered/Not Resolved]
